FAERS Safety Report 11557479 (Version 2)
Quarter: 2015Q4

REPORT INFORMATION
  Report Type: Spontaneous
  Country: BG (occurrence: BG)
  Receive Date: 20150926
  Receipt Date: 20151001
  Transmission Date: 20160304
  Serious: Yes (Death, Hospitalization)
  Sender: FDA-Public Use
  Company Number: BG-ABBVIE-15K-022-1467529-00

PATIENT
  Age: 60 Year
  Sex: Male
  Weight: 50 kg

DRUGS (1)
  1. HUMIRA [Suspect]
     Active Substance: ADALIMUMAB
     Indication: CROHN^S DISEASE
     Route: 065
     Dates: start: 201311, end: 201503

REACTIONS (11)
  - Oesophageal candidiasis [Fatal]
  - Pulmonary embolism [Fatal]
  - Enterocutaneous fistula [Fatal]
  - Klebsiella sepsis [Fatal]
  - Skin candida [Fatal]
  - Crohn^s disease [Fatal]
  - Haemoglobin decreased [Fatal]
  - Gastrointestinal haemorrhage [Fatal]
  - Pseudomonal sepsis [Fatal]
  - Thrombocytopenia [Fatal]
  - Candida sepsis [Fatal]

NARRATIVE: CASE EVENT DATE: 20150716
